FAERS Safety Report 11085681 (Version 2)
Quarter: 2015Q2

REPORT INFORMATION
  Report Type: Spontaneous
  Country: US (occurrence: US)
  Receive Date: 20150503
  Receipt Date: 20150525
  Transmission Date: 20150821
  Serious: No
  Sender: FDA-Public Use
  Company Number: US-JNJFOC-20140114307

PATIENT
  Sex: Male
  Weight: 88.45 kg

DRUGS (6)
  1. MEPOLIZUMAB [Concomitant]
     Active Substance: MEPOLIZUMAB
     Indication: ALLERGIC GRANULOMATOUS ANGIITIS
     Dosage: EVERY 7 WEEKS
     Route: 042
     Dates: start: 2013
  2. WELLBUTRIN XL [Concomitant]
     Active Substance: BUPROPION HYDROCHLORIDE
     Indication: DEPRESSION
     Dosage: DAILY
     Route: 048
  3. TRAMADOL ER [Suspect]
     Active Substance: TRAMADOL HYDROCHLORIDE
     Indication: MYALGIA
     Dosage: DAILY
     Route: 048
     Dates: start: 2011
  4. LOSARTAN [Concomitant]
     Active Substance: LOSARTAN
     Indication: BLOOD PRESSURE ABNORMAL
     Dosage: DAILY
     Route: 048
  5. WELLBUTRIN XL [Concomitant]
     Active Substance: BUPROPION HYDROCHLORIDE
     Indication: POST-TRAUMATIC STRESS DISORDER
     Dosage: DAILY
     Route: 048
  6. CLONAZEPAM. [Concomitant]
     Active Substance: CLONAZEPAM
     Indication: SLEEP DISORDER
     Dosage: DAILY
     Route: 048

REACTIONS (2)
  - Drug ineffective [Unknown]
  - Incorrect product storage [Recovered/Resolved]
